FAERS Safety Report 8363395-2 (Version None)
Quarter: 2012Q2

REPORT INFORMATION
  Report Type: 
  Country: None (occurrence: None)
  Receive Date: 20120516
  Receipt Date: 20120509
  Transmission Date: 20120825
  Serious: Yes (Hospitalization)
  Sender: FDA-Public Use
  Company Number: US-BAYER-2012-036018

PATIENT
  Age: 71 Year
  Sex: Male
  Weight: 85.261 kg

DRUGS (23)
  1. FENTANYL-100 [Concomitant]
     Dosage: 150 ?G, UNK
     Route: 042
     Dates: start: 20020607
  2. PLATELETS [Concomitant]
  3. HEPARIN [Concomitant]
     Dosage: UNK
     Dates: start: 20020607, end: 20020607
  4. ISOFLURANE [Concomitant]
     Dosage: UNK,INHALED
     Dates: start: 20020607
  5. PAPAVERINE [PAPAVERINE] [Concomitant]
     Dosage: UNK
     Dates: start: 20020607, end: 20020607
  6. TRASYLOL [Suspect]
     Indication: MITRAL VALVE REPAIR
  7. ASPIRIN [Concomitant]
     Dosage: UNK
  8. DOPAMINE HCL [Concomitant]
     Dosage: UNK
     Route: 042
     Dates: start: 20020607
  9. CONTRAST MEDIA [Concomitant]
     Dosage: UNK
     Dates: start: 20020531
  10. VIOXX [Concomitant]
  11. ANCEF [Concomitant]
     Dosage: UNK
     Dates: start: 20020607, end: 20020607
  12. MANNITOL [Concomitant]
     Dosage: UNK
     Dates: start: 20020607, end: 20020607
  13. PROTAMINE SULFATE [Concomitant]
     Dosage: UNK
     Dates: start: 20020607, end: 20020607
  14. TRASYLOL [Suspect]
     Indication: CORONARY ARTERY BYPASS
     Dosage: 100 ML, PUMP PRIME
     Dates: start: 20020607, end: 20060607
  15. VERAPAMIL [Concomitant]
  16. PHENYLEPHRINE HCL [Concomitant]
     Dosage: UNK
     Route: 042
     Dates: start: 20020607
  17. PROPOFOL [Concomitant]
     Dosage: 50 ML, UNK
     Route: 042
     Dates: start: 20020607
  18. NITROGLYCERIN [Concomitant]
  19. MAGNESIUM SULFATE [Concomitant]
     Dosage: 3 G, UNK
     Dates: start: 20020607, end: 20020607
  20. VERSED [Concomitant]
     Dosage: 2 MG, UNK
     Route: 042
     Dates: start: 20020607
  21. PACKED RED BLOOD CELLS [Concomitant]
     Dosage: 4 U, UNK
  22. CALCIUM CARBONATE [Concomitant]
  23. LIDOCAINE [Concomitant]
     Dosage: UNK
     Dates: start: 20020607, end: 20020607

REACTIONS (1)
  - RENAL FAILURE ACUTE [None]
